FAERS Safety Report 25255823 (Version 1)
Quarter: 2025Q2

REPORT INFORMATION
  Report Type: Other
  Country: US (occurrence: US)
  Receive Date: 20250430
  Receipt Date: 20250430
  Transmission Date: 20250716
  Serious: Yes (Other)
  Sender: ZHEJIANG JINGXIN PHARMACEUTICAL
  Company Number: US-Zhejiang Jingxin Pharmaceutical Co., Ltd-2175828

PATIENT
  Age: 35 Year
  Sex: Female

DRUGS (1)
  1. LEVETIRACETAM [Suspect]
     Active Substance: LEVETIRACETAM
     Indication: Partial seizures with secondary generalisation

REACTIONS (1)
  - Major depression [Recovered/Resolved]
